FAERS Safety Report 7369116-4 (Version None)
Quarter: 2011Q1

REPORT INFORMATION
  Report Type: 
  Country: None (occurrence: None)
  Receive Date: 20110323
  Receipt Date: 20110318
  Transmission Date: 20110831
  Serious: Yes (Hospitalization, Other)
  Sender: FDA-Public Use
  Company Number: US-ABBOTT-11P-163-0707114-00

PATIENT
  Sex: Male
  Weight: 63.56 kg

DRUGS (1)
  1. HUMIRA [Suspect]
     Indication: CROHN'S DISEASE
     Route: 058
     Dates: start: 20090915, end: 20101209

REACTIONS (7)
  - ABDOMINAL PAIN [None]
  - ASTHENIA [None]
  - HYPOPHAGIA [None]
  - POLYP [None]
  - INTESTINAL STENOSIS [None]
  - ILEAL STENOSIS [None]
  - ILEITIS [None]
